FAERS Safety Report 8769821 (Version 3)
Quarter: 2012Q4

REPORT INFORMATION
  Report Type: 
  Country: JP (occurrence: JP)
  Receive Date: 20120906
  Receipt Date: 20121124
  Transmission Date: 20130627
  Serious: Yes (Hospitalization)
  Sender: FDA-Public Use
  Company Number: JP-009507513-2012SP030756

PATIENT
  Age: 46 Year
  Sex: Male
  Weight: 81 kg

DRUGS (8)
  1. PEGINTRON [Suspect]
     Indication: CHRONIC HEPATITIS C
     Dosage: 1.5 Microgram perkilogram,qw, daily dose unknown
     Route: 058
     Dates: start: 20120216, end: 20120516
  2. REBETOL [Suspect]
     Indication: CHRONIC HEPATITIS C
     Dosage: 800 mg, qd
     Route: 048
     Dates: start: 20120216, end: 20120523
  3. TELAVIC [Suspect]
     Indication: CHRONIC HEPATITIS C
     Dosage: 2250 mg, qd
     Route: 048
     Dates: start: 20120216, end: 20120510
  4. DEPAKENE [Concomitant]
     Indication: SUBSTANCE-INDUCED PSYCHOTIC DISORDER
     Dosage: 400 mg, qd,formulation:POR
     Route: 048
  5. ROHYPNOL [Concomitant]
     Indication: INSOMNIA
     Dosage: 2 mg, qd,formulation:POR
     Route: 048
  6. LENDORMIN [Concomitant]
     Indication: INSOMNIA
     Dosage: 0.25 mg, qd,formulation:POR
     Route: 048
  7. VEGETAMIN B [Concomitant]
     Indication: SUBSTANCE-INDUCED PSYCHOTIC DISORDER
     Dosage: 1 DF, qd
     Route: 048
  8. ZYLORIC [Concomitant]
     Indication: HYPERURICAEMIA
     Dosage: 200 mg, qd,formulation:POR
     Route: 048
     Dates: end: 20120523

REACTIONS (4)
  - Blood creatine phosphokinase increased [Recovered/Resolved]
  - Depression [Unknown]
  - Substance-induced psychotic disorder [Recovering/Resolving]
  - Toxic skin eruption [Recovering/Resolving]
